FAERS Safety Report 10258565 (Version 1)
Quarter: 2014Q2

REPORT INFORMATION
  Report Type: Spontaneous
  Country: US (occurrence: None)
  Receive Date: 20140624
  Receipt Date: 20140624
  Transmission Date: 20141212
  Serious: Yes (Hospitalization)
  Sender: FDA-Public Use
  Company Number: None

PATIENT
  Age: 48 Year
  Sex: Female
  Weight: 67.13 kg

DRUGS (1)
  1. CIPROFLOXACIN [Suspect]
     Indication: CYSTITIS
     Dates: start: 20140408

REACTIONS (6)
  - Skin burning sensation [None]
  - Pain of skin [None]
  - Myalgia [None]
  - Feeling hot [None]
  - Hypoaesthesia [None]
  - Anuria [None]
